FAERS Safety Report 25641248 (Version 2)
Quarter: 2025Q3

REPORT INFORMATION
  Report Type: Spontaneous
  Country: EU (occurrence: EU)
  Receive Date: 20250804
  Receipt Date: 20250821
  Transmission Date: 20251021
  Serious: Yes (Hospitalization)
  Sender: MYLAN
  Company Number: None

PATIENT
  Age: 85 Year
  Sex: Male
  Weight: 84.5 kg

DRUGS (16)
  1. LANSOPRAZOLE [Suspect]
     Active Substance: LANSOPRAZOLE
     Indication: Product used for unknown indication
     Dosage: 15 MILLIGRAM, QD (15 MG DAILY)
     Dates: start: 20250403
  2. LANSOPRAZOLE [Suspect]
     Active Substance: LANSOPRAZOLE
     Dosage: 15 MILLIGRAM, QD (15 MG DAILY)
     Route: 048
     Dates: start: 20250403
  3. LANSOPRAZOLE [Suspect]
     Active Substance: LANSOPRAZOLE
     Dosage: 15 MILLIGRAM, QD (15 MG DAILY)
     Route: 048
     Dates: start: 20250403
  4. LANSOPRAZOLE [Suspect]
     Active Substance: LANSOPRAZOLE
     Dosage: 15 MILLIGRAM, QD (15 MG DAILY)
     Dates: start: 20250403
  5. IRBESARTAN [Suspect]
     Active Substance: IRBESARTAN
     Indication: Hypertension
     Dosage: UNK, QD (300/25 MG DAILY)
     Dates: start: 20250403
  6. IRBESARTAN [Suspect]
     Active Substance: IRBESARTAN
     Dosage: UNK, QD (300/25 MG DAILY)
     Route: 048
     Dates: start: 20250403
  7. IRBESARTAN [Suspect]
     Active Substance: IRBESARTAN
     Dosage: UNK, QD (300/25 MG DAILY)
     Route: 048
     Dates: start: 20250403
  8. IRBESARTAN [Suspect]
     Active Substance: IRBESARTAN
     Dosage: UNK, QD (300/25 MG DAILY)
     Dates: start: 20250403
  9. CLOPIDOGREL [Suspect]
     Active Substance: CLOPIDOGREL BISULFATE
     Indication: Ischaemic stroke
     Dosage: 75 MILLIGRAM, QD (75 MG DAILY)
     Dates: start: 20250402
  10. CLOPIDOGREL [Suspect]
     Active Substance: CLOPIDOGREL BISULFATE
     Dosage: 75 MILLIGRAM, QD (75 MG DAILY)
     Route: 048
     Dates: start: 20250402
  11. CLOPIDOGREL [Suspect]
     Active Substance: CLOPIDOGREL BISULFATE
     Dosage: 75 MILLIGRAM, QD (75 MG DAILY)
     Route: 048
     Dates: start: 20250402
  12. CLOPIDOGREL [Suspect]
     Active Substance: CLOPIDOGREL BISULFATE
     Dosage: 75 MILLIGRAM, QD (75 MG DAILY)
     Dates: start: 20250402
  13. HYDROCHLOROTHIAZIDE\IRBESARTAN [Suspect]
     Active Substance: HYDROCHLOROTHIAZIDE\IRBESARTAN
     Indication: Hypertension
     Dosage: 300/25 MG PER DAY
     Dates: end: 20250403
  14. HYDROCHLOROTHIAZIDE\IRBESARTAN [Suspect]
     Active Substance: HYDROCHLOROTHIAZIDE\IRBESARTAN
     Dosage: 300/25 MG PER DAY
     Route: 048
     Dates: end: 20250403
  15. HYDROCHLOROTHIAZIDE\IRBESARTAN [Suspect]
     Active Substance: HYDROCHLOROTHIAZIDE\IRBESARTAN
     Dosage: 300/25 MG PER DAY
     Route: 048
     Dates: end: 20250403
  16. HYDROCHLOROTHIAZIDE\IRBESARTAN [Suspect]
     Active Substance: HYDROCHLOROTHIAZIDE\IRBESARTAN
     Dosage: 300/25 MG PER DAY
     Dates: end: 20250403

REACTIONS (1)
  - Acute kidney injury [Recovering/Resolving]

NARRATIVE: CASE EVENT DATE: 20250402
